FAERS Safety Report 4622248-3 (Version None)
Quarter: 2005Q1

REPORT INFORMATION
  Report Type: 
  Country: None (occurrence: None)
  Receive Date: 20050323
  Receipt Date: 20050323
  Transmission Date: 20050727
  Serious: Yes (Hospitalization)
  Sender: FDA-Public Use
  Company Number: None

PATIENT
  Sex: Female
  Weight: 68.0396 kg

DRUGS (6)
  1. BACLOFEN [Suspect]
     Indication: PAIN
     Dosage: 1250 MCG/DAY IT
     Route: 037
     Dates: start: 20020408, end: 20020410
  2. ELAVIL [Concomitant]
  3. LEVOXYL [Concomitant]
  4. COZAAR [Concomitant]
  5. LIPITOR [Concomitant]
  6. PROTONIX [Concomitant]

REACTIONS (1)
  - MEDICATION ERROR [None]
